FAERS Safety Report 8020247-5 (Version None)
Quarter: 2012Q1

REPORT INFORMATION
  Report Type: 
  Country: None (occurrence: None)
  Receive Date: 20120103
  Receipt Date: 20111219
  Transmission Date: 20120608
  Serious: Yes (Hospitalization)
  Sender: FDA-Public Use
  Company Number: US-JUTA GMBH-2011-22391

PATIENT
  Age: 69 Year
  Sex: Male

DRUGS (2)
  1. CARVEDILOL [Suspect]
     Indication: BENIGN PROSTATIC HYPERPLASIA
     Dosage: 25 MG, QAM
  2. CARVEDILOL [Suspect]
     Dosage: 50 MG, QPM

REACTIONS (4)
  - CONDITION AGGRAVATED [None]
  - BENIGN PROSTATIC HYPERPLASIA [None]
  - DRUG WITHDRAWAL SYNDROME [None]
  - URINARY RETENTION [None]
